FAERS Safety Report 9694249 (Version 1)
Quarter: 2013Q4

REPORT INFORMATION
  Report Type: Spontaneous
  Country: US (occurrence: US)
  Receive Date: 20131118
  Receipt Date: 20131118
  Transmission Date: 20140711
  Serious: No
  Sender: FDA-Public Use
  Company Number: US-PFIZER INC-2013327243

PATIENT
  Age: 40 Year
  Sex: Female
  Weight: 61.2 kg

DRUGS (7)
  1. ZOLOFT [Suspect]
     Indication: DEPRESSION
     Dosage: 200 MG, 1X/DAY
     Route: 048
     Dates: end: 201304
  2. ZOLOFT [Suspect]
     Dosage: 200 MG, 1X/DAY
     Route: 048
     Dates: start: 201307
  3. SEROQUEL [Suspect]
     Indication: DEPRESSION
     Dosage: UNK
  4. SEROQUEL [Suspect]
     Dosage: UNK
     Dates: start: 201307
  5. VICODIN [Concomitant]
     Dosage: UNK
  6. METHYLPREDNISOLONE [Concomitant]
     Dosage: UNK
  7. IBUPROFEN [Concomitant]
     Dosage: UNK

REACTIONS (4)
  - Depression [Unknown]
  - Accident [Unknown]
  - Muscle spasms [Recovered/Resolved]
  - Back pain [Not Recovered/Not Resolved]
